FAERS Safety Report 7530937-6 (Version None)
Quarter: 2011Q2

REPORT INFORMATION
  Report Type: 
  Country: None (occurrence: None)
  Receive Date: 20110608
  Receipt Date: 20110527
  Transmission Date: 20111010
  Serious: No
  Sender: FDA-Public Use
  Company Number: CA-ELI_LILLY_AND_COMPANY-CA201105007958

PATIENT
  Sex: Female

DRUGS (11)
  1. BENZTROPINE MESYLATE [Concomitant]
  2. INDAPAMIDE [Concomitant]
  3. ZOCOR [Concomitant]
  4. ZYPREXA [Suspect]
     Indication: SCHIZOPHRENIA
     Dosage: 10 MG, QD
     Dates: start: 20020122
  5. ZYPREXA [Suspect]
     Dosage: 5 MG, QD
  6. TEMAZEPAM [Concomitant]
  7. ASPIRIN LOW [Concomitant]
  8. EFFEXOR XR [Concomitant]
  9. ADALAT CC [Concomitant]
  10. ZYPREXA [Suspect]
     Dosage: 2.5 MG, EACH EVENING
  11. ALTACE [Concomitant]

REACTIONS (7)
  - HAEMATURIA [None]
  - CHOLELITHIASIS [None]
  - CORONARY ARTERY DISEASE [None]
  - DIABETIC NEUROPATHY [None]
  - TYPE 2 DIABETES MELLITUS [None]
  - SKIN ULCER [None]
  - OEDEMA PERIPHERAL [None]
